FAERS Safety Report 8804589 (Version 3)
Quarter: 2013Q1

REPORT INFORMATION
  Report Type: Spontaneous
  Country: DE (occurrence: PH)
  Receive Date: 20120924
  Receipt Date: 20130201
  Transmission Date: 20140127
  Serious: Yes (Death, Other)
  Sender: FDA-Public Use
  Company Number: PH-FRI-1000038865

PATIENT
  Age: 82 Year
  Sex: Male
  Weight: 45 kg

DRUGS (3)
  1. ROFLUMILAST [Suspect]
     Indication: CHRONIC OBSTRUCTIVE PULMONARY DISEASE
     Dosage: 500 MCG
     Route: 048
  2. BUDESONIDE [Concomitant]
  3. COMBIVENT [Concomitant]

REACTIONS (2)
  - Cardio-respiratory arrest [Fatal]
  - Insomnia [Unknown]
